FAERS Safety Report 19889064 (Version 1)
Quarter: 2021Q3

REPORT INFORMATION
  Report Type: Spontaneous
  Country: US (occurrence: US)
  Receive Date: 20210928
  Receipt Date: 20210928
  Transmission Date: 20211014
  Serious: Yes (Other)
  Sender: FDA-Public Use
  Company Number: None

PATIENT
  Age: 68 Year
  Sex: Female
  Weight: 58.5 kg

DRUGS (8)
  1. TRULICITY [Concomitant]
     Active Substance: DULAGLUTIDE
  2. AMLODAPINE [Concomitant]
  3. QUINAPRIL. [Concomitant]
     Active Substance: QUINAPRIL
  4. VITAMIN D [Concomitant]
     Active Substance: VITAMIN D NOS
  5. MULTI VITAMIN [Concomitant]
     Active Substance: VITAMINS
  6. METFORMAN [Concomitant]
     Active Substance: METFORMIN HYDROCHLORIDE
  7. ATORVASTATIN CALCIUM. [Suspect]
     Active Substance: ATORVASTATIN CALCIUM
     Indication: BLOOD CHOLESTEROL ABNORMAL
     Route: 048
     Dates: start: 20210315, end: 20210902
  8. CALCIUM [Concomitant]
     Active Substance: CALCIUM

REACTIONS (4)
  - Hip surgery [None]
  - Muscle spasms [None]
  - Myalgia [None]
  - Joint stiffness [None]

NARRATIVE: CASE EVENT DATE: 20210818
